FAERS Safety Report 12220044 (Version 2)
Quarter: 2016Q2

REPORT INFORMATION
  Report Type: Report from Study
  Country: BR (occurrence: BR)
  Receive Date: 20160330
  Receipt Date: 20160518
  Transmission Date: 20160815
  Serious: Yes (Hospitalization)
  Sender: FDA-Public Use
  Company Number: BR-UCBSA-2016007458

PATIENT
  Age: 57 Year
  Sex: Female
  Weight: 78 kg

DRUGS (10)
  1. METHOTREXATE [Concomitant]
     Active Substance: METHOTREXATE
     Indication: RHEUMATOID ARTHRITIS
     Dosage: UNK
     Route: 048
     Dates: start: 2015
  2. OMEPRAZOLE. [Concomitant]
     Active Substance: OMEPRAZOLE
     Indication: GASTRIC DISORDER
     Dosage: UNK, 2X/DAY (BID)
     Route: 048
     Dates: start: 2014
  3. FOLIC ACID. [Concomitant]
     Active Substance: FOLIC ACID
     Indication: RHEUMATOID ARTHRITIS
     Dosage: UNK, WEEKLY (QW)
     Route: 048
     Dates: start: 2014
  4. NIMESULIDE [Concomitant]
     Active Substance: NIMESULIDE
     Indication: SURGERY
     Dosage: UNK, 2X/DAY (BID)
     Route: 048
     Dates: start: 20160227, end: 20160302
  5. SERTRALINE [Concomitant]
     Active Substance: SERTRALINE HYDROCHLORIDE
     Indication: DEPRESSION
     Dosage: UNK, ONCE DAILY (QD)
     Dates: start: 2015
  6. LEFLUNOMIDE. [Concomitant]
     Active Substance: LEFLUNOMIDE
     Indication: RHEUMATOID ARTHRITIS
     Dosage: UNK, ONCE DAILY (QD)
     Route: 048
     Dates: start: 2014
  7. BROMOPRIDE [Concomitant]
     Active Substance: BROMOPRIDE
     Indication: GASTRIC DISORDER
     Dosage: UNK
     Route: 048
     Dates: start: 201509
  8. CALCIUM [Concomitant]
     Active Substance: CALCIUM
     Indication: OSTEOPENIA
     Dosage: UNK, ONCE DAILY (QD)
     Route: 048
     Dates: start: 201507
  9. CERTOLIZUMAB PEGOL [Suspect]
     Active Substance: CERTOLIZUMAB PEGOL
     Indication: RHEUMATOID ARTHRITIS
     Dosage: 400 MG, MONTHLY (QM)
     Dates: start: 2015
  10. VENALOT [Concomitant]
     Active Substance: COUMARIN\TROXERUTIN
     Indication: SURGERY
     Dosage: UNK, 2X/DAY (BID)
     Route: 048
     Dates: start: 20160227

REACTIONS (4)
  - Osteopenia [Unknown]
  - Varicose vein [Recovered/Resolved]
  - Drug dose omission [Unknown]
  - Gastric disorder [Unknown]

NARRATIVE: CASE EVENT DATE: 201507
